FAERS Safety Report 22264050 (Version 1)
Quarter: 2023Q2

REPORT INFORMATION
  Report Type: Spontaneous
  Country: US (occurrence: None)
  Receive Date: 20230426
  Receipt Date: 20230426
  Transmission Date: 20230721
  Serious: Yes (Other)
  Sender: FDA-Public Use
  Company Number: None

PATIENT
  Sex: Male

DRUGS (1)
  1. COSENTYX [Suspect]
     Active Substance: SECUKINUMAB
     Indication: Psoriasis
     Dosage: FREQUENCY : AS DIRECTED;?RX2: INJECT 300 MG UNDER THE SKIN (SUBCUTANEOUS INJECTION) ON WEEK 4 AND EV
     Route: 058
     Dates: start: 20230211

REACTIONS (2)
  - Renal cancer [None]
  - Renal surgery [None]
